FAERS Safety Report 11114759 (Version 1)
Quarter: 2015Q2

REPORT INFORMATION
  Report Type: Spontaneous
  Country: US (occurrence: US)
  Receive Date: 20150515
  Receipt Date: 20150515
  Transmission Date: 20150821
  Serious: No
  Sender: FDA-Public Use
  Company Number: US-ELI_LILLY_AND_COMPANY-US201309008561

PATIENT
  Age: 57 Year
  Sex: Male

DRUGS (2)
  1. AXIRON [Suspect]
     Active Substance: TESTOSTERONE
     Indication: BLOOD TESTOSTERONE DECREASED
     Dosage: 60 MG, QD
     Route: 065
  2. AXIRON [Suspect]
     Active Substance: TESTOSTERONE
     Dosage: 30 MG, QD
     Route: 065

REACTIONS (8)
  - Underdose [Unknown]
  - Aggression [Unknown]
  - Blood testosterone increased [Not Recovered/Not Resolved]
  - Asthenia [Unknown]
  - Drug dose omission [Unknown]
  - Anxiety [Unknown]
  - Alopecia [Unknown]
  - Eye disorder [Unknown]
